FAERS Safety Report 21959964 (Version 2)
Quarter: 2023Q2

REPORT INFORMATION
  Report Type: Spontaneous
  Country: DE (occurrence: DE)
  Receive Date: 20230206
  Receipt Date: 20230614
  Transmission Date: 20230721
  Serious: Yes (Death, Hospitalization, Other)
  Sender: FDA-Public Use
  Company Number: DE-DESMA-23DESBI003R

PATIENT
  Age: 56 Year
  Sex: Male
  Weight: 120 kg

DRUGS (10)
  1. HALDOL [Suspect]
     Active Substance: HALOPERIDOL
     Indication: Schizoaffective disorder
     Route: 065
  2. AMITRIPTYLINE [Suspect]
     Active Substance: AMITRIPTYLINE
     Indication: Schizoaffective disorder
     Route: 065
  3. THIORIDAZINE [Suspect]
     Active Substance: THIORIDAZINE
     Indication: Schizoaffective disorder
     Route: 065
  4. PIMOZIDE [Suspect]
     Active Substance: PIMOZIDE
     Indication: Schizophrenia
     Route: 065
  5. PIMOZIDE [Suspect]
     Active Substance: PIMOZIDE
     Indication: Schizoaffective disorder
  6. BIPERIDEN [Suspect]
     Active Substance: BIPERIDEN
     Indication: Schizoaffective disorder
     Route: 065
  7. LEVOMEPROMAZINE [Suspect]
     Active Substance: LEVOMEPROMAZINE
     Indication: Schizoaffective disorder
     Route: 065
  8. FLUPHENAZINE [Suspect]
     Active Substance: FLUPHENAZINE
     Indication: Schizoaffective disorder
     Route: 065
  9. LITHIUM [Suspect]
     Active Substance: LITHIUM
     Indication: Schizophrenia
     Route: 065
  10. LITHIUM [Suspect]
     Active Substance: LITHIUM
     Indication: Schizoaffective disorder

REACTIONS (9)
  - Cardiac failure [Fatal]
  - Megacolon [Fatal]
  - Cardiotoxicity [Fatal]
  - Ileus paralytic [Fatal]
  - Circulatory collapse [Unknown]
  - Cardio-respiratory arrest [Unknown]
  - Cardiac infection [Fatal]
  - Multiple organ dysfunction syndrome [Fatal]
  - Toxicity to various agents [Fatal]
